FAERS Safety Report 9450254 (Version 1)
Quarter: 2013Q3

REPORT INFORMATION
  Report Type: Spontaneous
  Country: CA (occurrence: None)
  Receive Date: 20130807
  Receipt Date: 20130807
  Transmission Date: 20140515
  Serious: Yes (Other)
  Sender: FDA-Public Use
  Company Number: INT_00282_2013

PATIENT
  Age: 30 Year
  Sex: Female

DRUGS (16)
  1. CEFAZOLIN (CEFAZOLIN) [Suspect]
     Indication: HAEMOPHILUS INFECTION
  2. CEFAZOLIN (CEFAZOLIN) [Suspect]
     Indication: ALPHA HAEMOLYTIC STREPTOCOCCAL INFECTION
  3. CLINDAMYCIN (CLINDAMYCIN) [Suspect]
     Indication: HAEMOPHILUS INFECTION
  4. CLINDAMYCIN (CLINDAMYCIN) [Suspect]
     Indication: ALPHA HAEMOLYTIC STREPTOCOCCAL INFECTION
  5. VANCOMYCIN (VANCOMYCIN) [Suspect]
     Indication: HAEMOPHILUS INFECTION
  6. VANCOMYCIN (VANCOMYCIN) [Suspect]
     Indication: ALPHA HAEMOLYTIC STREPTOCOCCAL INFECTION
  7. PIPERACILLIN/TAZOBACTAM [Concomitant]
  8. CEFTRIAXONE [Concomitant]
  9. MERONIDAZOLE [Concomitant]
  10. TRIAMCINOLONE [Concomitant]
  11. MINOCYCLINE [Concomitant]
  12. AMIKACIN [Concomitant]
  13. ACETAMINOHEN [Concomitant]
  14. CEPHALEXIN /00145501/ [Concomitant]
  15. PREDNISONE [Concomitant]
  16. DEFLAZACORT [Concomitant]

REACTIONS (6)
  - Somnolence [None]
  - Dyspnoea [None]
  - Rash generalised [None]
  - Pyrexia [None]
  - Red man syndrome [None]
  - Drug hypersensitivity [None]
